FAERS Safety Report 7406180-8 (Version None)
Quarter: 2011Q2

REPORT INFORMATION
  Report Type: 
  Country: None (occurrence: None)
  Receive Date: 20110405
  Receipt Date: 20110405
  Transmission Date: 20111010
  Serious: Yes (Other)
  Sender: FDA-Public Use
  Company Number: None

PATIENT
  Age: 60 Year
  Sex: Male
  Weight: 74.8435 kg

DRUGS (2)
  1. VERAMYST [Suspect]
     Indication: SNEEZING
     Dosage: 2 PUFFS DAILY
     Dates: start: 20000101, end: 20110320
  2. VERAMYST [Suspect]
     Indication: RHINITIS
     Dosage: 2 PUFFS DAILY
     Dates: start: 20000101, end: 20110320

REACTIONS (2)
  - ERECTILE DYSFUNCTION [None]
  - INFLUENZA LIKE ILLNESS [None]
